FAERS Safety Report 5854461-1 (Version None)
Quarter: 2008Q3

REPORT INFORMATION
  Report Type: 
  Country: None (occurrence: None)
  Receive Date: 20080822
  Receipt Date: 20080812
  Transmission Date: 20090109
  Serious: Yes (Hospitalization, Other)
  Sender: FDA-Public Use
  Company Number: US-PFIZER INC-2008055217

PATIENT
  Sex: Male
  Weight: 75 kg

DRUGS (7)
  1. DETROL LA [Suspect]
     Indication: INCONTINENCE
     Route: 048
     Dates: start: 20080401, end: 20080501
  2. METOPROLOL [Concomitant]
  3. FLONASE [Concomitant]
  4. ADVAIR DISKUS 100/50 [Concomitant]
  5. ASPIRIN [Concomitant]
  6. ANTIGLAUCOMA PREPARATIONS AND MIOTICS [Concomitant]
  7. OPHTHALMOLOGICALS [Concomitant]

REACTIONS (4)
  - DYSURIA [None]
  - SEPSIS [None]
  - URINARY TRACT INFECTION [None]
  - URINE ANALYSIS ABNORMAL [None]
